FAERS Safety Report 17647224 (Version 1)
Quarter: 2020Q2

REPORT INFORMATION
  Report Type: Spontaneous
  Country: US (occurrence: US)
  Receive Date: 20200408
  Receipt Date: 20200408
  Transmission Date: 20200713
  Serious: Yes (Hospitalization, Other)
  Sender: FDA-Public Use
  Company Number: US-AUROBINDO-AUR-APL-2020-016542

PATIENT
  Age: 52 Year
  Sex: Male

DRUGS (3)
  1. CEPHALEXIN. [Suspect]
     Active Substance: CEPHALEXIN
     Indication: CELLULITIS
  2. CEPHALEXIN. [Suspect]
     Active Substance: CEPHALEXIN
     Indication: NEUROSYPHILIS
     Dosage: UNK
     Route: 065
  3. PENICILLIN G [Concomitant]
     Active Substance: PENICILLIN G
     Indication: PRODUCT USED FOR UNKNOWN INDICATION
     Dosage: UNK, 3.5 MILLION UNITS EVERY 4 HOURS ON DAY 8
     Route: 065

REACTIONS (13)
  - Mania [Recovering/Resolving]
  - Cognitive disorder [Recovering/Resolving]
  - Language disorder [Recovering/Resolving]
  - Loss of personal independence in daily activities [Recovering/Resolving]
  - Agitation [Recovering/Resolving]
  - Behaviour disorder [Recovering/Resolving]
  - Delirium [Recovering/Resolving]
  - Fatigue [Recovering/Resolving]
  - Mental status changes [Recovering/Resolving]
  - Hallucination, auditory [Recovering/Resolving]
  - Psychotic disorder [Recovering/Resolving]
  - Memory impairment [Recovering/Resolving]
  - Delusion of grandeur [Recovering/Resolving]
